FAERS Safety Report 13357426 (Version 1)
Quarter: 2017Q1

REPORT INFORMATION
  Report Type: Spontaneous
  Country: US (occurrence: US)
  Receive Date: 20170322
  Receipt Date: 20170322
  Transmission Date: 20170429
  Serious: No
  Sender: FDA-Public Use
  Company Number: US-ENDO PHARMACEUTICALS INC-2016-005896

PATIENT
  Sex: Male
  Weight: 68.1 kg

DRUGS (1)
  1. OXYCODONE HCL 30MG [Suspect]
     Active Substance: OXYCODONE HYDROCHLORIDE
     Indication: SPINAL PAIN
     Dosage: 30 MG, UNKNOWN
     Route: 048
     Dates: start: 201607

REACTIONS (4)
  - Pain [Recovered/Resolved]
  - Feeling abnormal [Recovered/Resolved]
  - Rash vesicular [Recovered/Resolved]
  - Drug ineffective [Recovered/Resolved]

NARRATIVE: CASE EVENT DATE: 2016
